FAERS Safety Report 11396835 (Version 4)
Quarter: 2015Q4

REPORT INFORMATION
  Report Type: Spontaneous
  Country: US (occurrence: US)
  Receive Date: 20150819
  Receipt Date: 20151202
  Transmission Date: 20160304
  Serious: Yes (Other)
  Sender: FDA-Public Use
  Company Number: US-BAYER-2015-400713

PATIENT
  Age: 35 Year
  Sex: Female

DRUGS (1)
  1. MIRENA [Suspect]
     Active Substance: LEVONORGESTREL
     Indication: CONTRACEPTION
     Dosage: 20 MCG/24HR, CONT
     Route: 015
     Dates: start: 20141204

REACTIONS (6)
  - Vaginal haemorrhage [None]
  - Dyspareunia [None]
  - Device dislocation [None]
  - Product quality issue [None]
  - Coital bleeding [None]
  - Menstruation irregular [None]

NARRATIVE: CASE EVENT DATE: 201412
